FAERS Safety Report 10242171 (Version 2)
Quarter: 2014Q3

REPORT INFORMATION
  Report Type: Spontaneous
  Country: JP (occurrence: JP)
  Receive Date: 20140617
  Receipt Date: 20140728
  Transmission Date: 20150326
  Serious: Yes (Other)
  Sender: FDA-Public Use
  Company Number: JP-BRISTOL-MYERS SQUIBB COMPANY-21014436

PATIENT
  Age: 78 Year
  Sex: Male
  Weight: 58 kg

DRUGS (6)
  1. GASMOTIN [Concomitant]
     Active Substance: MOSAPRIDE CITRATE
     Indication: HYPOPHAGIA
  2. ERBITUX [Suspect]
     Active Substance: CETUXIMAB
     Indication: RECTAL CANCER
     Dosage: 08MAY-08MAY13,650MG?MAY13-01NOV2013,400MG
     Route: 041
     Dates: start: 20130508, end: 20131101
  3. PREDONINE [Suspect]
     Active Substance: PREDNISOLONE\PREDNISOLONE ACETATE\PREDNISOLONE SODIUM SUCCINATE
     Indication: HYPOPHAGIA
     Route: 048
     Dates: start: 20130207, end: 20131207
  4. CPT-11 [Concomitant]
     Active Substance: IRINOTECAN
     Indication: RECTAL CANCER
     Route: 042
     Dates: start: 20130809, end: 20131101
  5. LAC-B [Concomitant]
     Active Substance: BIFIDOBACTERIUM SPP.
     Indication: BOWEL MOVEMENT IRREGULARITY
  6. AMLODIN [Concomitant]
     Active Substance: AMLODIPINE BESYLATE

REACTIONS (2)
  - Gastrointestinal haemorrhage [Recovering/Resolving]
  - Intestinal stent insertion [Recovering/Resolving]

NARRATIVE: CASE EVENT DATE: 20130731
